FAERS Safety Report 24824520 (Version 2)
Quarter: 2025Q3

REPORT INFORMATION
  Report Type: Report from Study
  Country: US (occurrence: US)
  Receive Date: 20250109
  Receipt Date: 20250809
  Transmission Date: 20251021
  Serious: Yes (Hospitalization, Other)
  Sender: ALEXION PHARMACEUTICALS
  Company Number: US-AstraZeneca-CH-00780045A

PATIENT
  Sex: Male

DRUGS (1)
  1. KOSELUGO [Suspect]
     Active Substance: SELUMETINIB
     Route: 065

REACTIONS (4)
  - Hernia obstructive [Recovering/Resolving]
  - Vomiting [Recovering/Resolving]
  - Inflammation [Recovering/Resolving]
  - Product dose omission issue [Recovering/Resolving]
